FAERS Safety Report 6210042-1 (Version None)
Quarter: 2009Q2

REPORT INFORMATION
  Report Type: 
  Country: None (occurrence: None)
  Receive Date: 20090601
  Receipt Date: 20090528
  Transmission Date: 20091009
  Serious: Yes (Death, Other)
  Sender: FDA-Public Use
  Company Number: PHHY2008MX27695

PATIENT
  Sex: Female

DRUGS (1)
  1. DIOVAN [Suspect]
     Indication: HYPERTENSION
     Dosage: 160 MG, BID
     Route: 048
     Dates: start: 20060101

REACTIONS (4)
  - CARDIO-RESPIRATORY ARREST [None]
  - LIVER DISORDER [None]
  - RENAL FAILURE [None]
  - RESPIRATORY ARREST [None]
